FAERS Safety Report 7432935-X (Version None)
Quarter: 2011Q2

REPORT INFORMATION
  Report Type: 
  Country: None (occurrence: None)
  Receive Date: 20110422
  Receipt Date: 20110415
  Transmission Date: 20111010
  Serious: Yes (Other)
  Sender: FDA-Public Use
  Company Number: US-PFIZER INC-2011084081

PATIENT
  Age: 11 Year
  Sex: Male

DRUGS (1)
  1. GEODON [Suspect]

REACTIONS (1)
  - AGITATION [None]
